FAERS Safety Report 5656154-2 (Version None)
Quarter: 2008Q1

REPORT INFORMATION
  Report Type: 
  Country: None (occurrence: None)
  Receive Date: 20080305
  Receipt Date: 20080222
  Transmission Date: 20080703
  Serious: Yes (Death)
  Sender: FDA-Public Use
  Company Number: 20084744

PATIENT
  Age: 59 Year
  Sex: Female

DRUGS (1)
  1. LIORESAL [Suspect]
     Indication: MUSCLE SPASTICITY
     Dosage: 343.24 MCG, DAILY, INTRATHECAL
     Route: 037

REACTIONS (6)
  - ASTHENIA [None]
  - BODY TEMPERATURE DECREASED [None]
  - FATIGUE [None]
  - FOOD INTOLERANCE [None]
  - SPEECH DISORDER [None]
  - WEIGHT DECREASED [None]
